FAERS Safety Report 6625843-5 (Version None)
Quarter: 2010Q1

REPORT INFORMATION
  Report Type: 
  Country: None (occurrence: None)
  Receive Date: 20100310
  Receipt Date: 20100226
  Transmission Date: 20100710
  Serious: Yes (Hospitalization)
  Sender: FDA-Public Use
  Company Number: GB-ELI_LILLY_AND_COMPANY-GB201003000402

PATIENT
  Sex: Male

DRUGS (2)
  1. HUMALOG MIX 50/50 [Suspect]
     Dosage: UNK, 3/D
  2. LISPRO [Suspect]
     Dosage: UNK, UNKNOWN

REACTIONS (1)
  - WRONG DRUG ADMINISTERED [None]
